FAERS Safety Report 5886009-X (Version None)
Quarter: 2008Q3

REPORT INFORMATION
  Report Type: 
  Country: None (occurrence: None)
  Receive Date: 20080917
  Receipt Date: 20080819
  Transmission Date: 20090109
  Serious: Yes (Life-Threatening, Other)
  Sender: FDA-Public Use
  Company Number: NO-BAYER-200824685GPV

PATIENT
  Age: 40 Year
  Sex: Female

DRUGS (2)
  1. BETAFERON [Suspect]
     Indication: MULTIPLE SCLEROSIS
     Route: 058
     Dates: start: 20000401, end: 20080701
  2. VITAMIN D (DEKRISTOL) VS. PLACEBO [Suspect]

REACTIONS (2)
  - CEREBRAL HAEMATOMA [None]
  - THROMBOCYTOPENIA [None]
